FAERS Safety Report 7807163-6 (Version None)
Quarter: 2011Q4

REPORT INFORMATION
  Report Type: 
  Country: None (occurrence: None)
  Receive Date: 20111011
  Receipt Date: 20111004
  Transmission Date: 20120403
  Serious: Yes (Hospitalization, Other)
  Sender: FDA-Public Use
  Company Number: PHHY2011MX88847

PATIENT
  Sex: Female

DRUGS (12)
  1. AMIODARONE HCL [Concomitant]
     Indication: CARDIAC DISORDER
     Dosage: ONCE A DAY
     Dates: start: 20110602
  2. ZOLEDRONOC ACID [Suspect]
     Indication: OSTEOPOROSIS
     Dosage: 5 MG,
     Route: 042
     Dates: start: 20100806
  3. ASPIRIN [Concomitant]
     Dosage: MIDDLE TABLET ONCE A DAY
     Dates: start: 20110602
  4. PANTOPRAZOLE [Concomitant]
     Indication: GASTRITIS
     Dosage: ONCE A DAY
     Dates: start: 20110901
  5. LOSARTAN POTASSIUM [Concomitant]
     Indication: HYPERTENSION
     Dosage: ONCE A DAY
     Dates: start: 20110602
  6. DIGOXIN [Concomitant]
     Indication: CARDIAC DISORDER
     Dosage: ONCE A DAY
  7. SENNOSIDE [Concomitant]
     Indication: CONSTIPATION
     Dosage: 2 TABLETS BY DAY.
     Dates: start: 19960101
  8. CENTRALINE [Concomitant]
     Indication: NEURALGIA
     Dosage: MIDDLE TABLET ONCE BY DAY
     Dates: start: 20110901
  9. CLOPIDOGREL [Concomitant]
     Dosage: MIDDLE TABLET ONCE A DAY
     Dates: start: 20110602
  10. ALPRAZOLAM [Concomitant]
     Dosage: MIDDLE TABLET ONCE A DAY
     Dates: start: 20110602
  11. GASGEL [Concomitant]
     Indication: GASTRITIS
     Dosage: ONE BY DAY
  12. GABAPENTINE [Concomitant]
     Indication: NEURALGIA
     Dosage: ONCE BY DAY
     Dates: start: 20110901

REACTIONS (1)
  - TACHYCARDIA [None]
